FAERS Safety Report 9299415 (Version 3)
Quarter: 2016Q1

REPORT INFORMATION
  Report Type: Spontaneous
  Country: IT (occurrence: IT)
  Receive Date: 20130520
  Receipt Date: 20160205
  Transmission Date: 20160526
  Serious: Yes (Hospitalization, Other)
  Sender: FDA-Public Use
  Company Number: IT-BRISTOL-MYERS SQUIBB COMPANY-18883157

PATIENT
  Age: 2 Year
  Sex: Male
  Weight: 15 kg

DRUGS (3)
  1. LASIX [Suspect]
     Active Substance: FUROSEMIDE
     Indication: PRODUCT USED FOR UNKNOWN INDICATION
     Dosage: UNK
     Route: 048
     Dates: start: 20120513
  2. COUMADIN [Suspect]
     Active Substance: WARFARIN SODIUM
     Indication: PRODUCT USED FOR UNKNOWN INDICATION
     Dosage: 5 MG, UNK
     Route: 048
     Dates: start: 20120513
  3. GLIBOMET [Suspect]
     Active Substance: GLYBURIDE\METFORMIN HYDROCHLORIDE
     Indication: PRODUCT USED FOR UNKNOWN INDICATION
     Dosage: UNK
     Route: 048
     Dates: start: 20120513

REACTIONS (5)
  - Accidental exposure to product by child [Unknown]
  - Sinus tachycardia [Unknown]
  - Transaminases increased [Recovered/Resolved]
  - Off label use [Unknown]
  - Bundle branch block right [Unknown]

NARRATIVE: CASE EVENT DATE: 20120513
